FAERS Safety Report 17749668 (Version 1)
Quarter: 2020Q2

REPORT INFORMATION
  Report Type: Spontaneous
  Country: US (occurrence: US)
  Receive Date: 20200506
  Receipt Date: 20200506
  Transmission Date: 20200714
  Serious: No
  Sender: FDA-Public Use
  Company Number: US-TEVA-2020-US-1232266

PATIENT
  Sex: Male
  Weight: 131.54 kg

DRUGS (1)
  1. GENERIC PROTONIX [Suspect]
     Active Substance: PANTOPRAZOLE SODIUM
     Indication: GASTROOESOPHAGEAL REFLUX DISEASE
     Dosage: 40 MILLIGRAM DAILY; 40MG TABLET BY MOUTH DAILY
     Route: 065

REACTIONS (1)
  - Drug ineffective [Unknown]
